FAERS Safety Report 9324612 (Version 1)
Quarter: 2013Q2

REPORT INFORMATION
  Report Type: Report from Study
  Country: IT (occurrence: IT)
  Receive Date: 20130603
  Receipt Date: 20130603
  Transmission Date: 20140414
  Serious: Yes (Hospitalization)
  Sender: FDA-Public Use
  Company Number: IT-GLAXOSMITHKLINE-Z0017411B

PATIENT
  Age: 45 Year
  Sex: Male
  Weight: 70 kg

DRUGS (2)
  1. PLACEBO [Suspect]
     Indication: RELAPSING-REMITTING MULTIPLE SCLEROSIS
     Route: 058
     Dates: start: 20121017, end: 20121017
  2. OFATUMUMAB [Suspect]
     Indication: RELAPSING-REMITTING MULTIPLE SCLEROSIS
     Route: 058
     Dates: start: 20121024

REACTIONS (1)
  - Injection related reaction [Recovered/Resolved]
